FAERS Safety Report 5160085-4 (Version None)
Quarter: 2006Q4

REPORT INFORMATION
  Report Type: 
  Country: None (occurrence: None)
  Receive Date: 20061129
  Receipt Date: 20060919
  Transmission Date: 20070319
  Serious: No
  Sender: FDA-Public Use
  Company Number: US-GLAXOSMITHKLINE-A0620842A

PATIENT
  Age: 57 Year
  Sex: Female

DRUGS (7)
  1. WELLBUTRIN SR [Suspect]
     Indication: DEPRESSION
     Dosage: 1500MG TWICE PER DAY
     Route: 048
     Dates: start: 20000101, end: 20030101
  2. LITHIUM CARBONATE [Concomitant]
  3. XANAX [Concomitant]
  4. FLOVENT [Concomitant]
  5. ALBUTEROL [Concomitant]
  6. ATROVENT [Concomitant]
  7. PAXIL [Concomitant]

REACTIONS (1)
  - NAUSEA [None]
